FAERS Safety Report 9207910 (Version 1)
Quarter: 2013Q2

REPORT INFORMATION
  Report Type: Spontaneous
  Country: IT (occurrence: IT)
  Receive Date: 20130403
  Receipt Date: 20130403
  Transmission Date: 20140414
  Serious: Yes (Other)
  Sender: FDA-Public Use
  Company Number: IT-BRISTOL-MYERS SQUIBB COMPANY-18718973

PATIENT
  Age: 87 Year
  Sex: Male

DRUGS (1)
  1. COUMADIN TABS 5 MG [Suspect]
     Indication: ATRIAL FIBRILLATION
     Dosage: TO 15MAR13
     Route: 048
     Dates: start: 20130101

REACTIONS (2)
  - Syncope [Recovered/Resolved]
  - Haematemesis [Recovered/Resolved]
